FAERS Safety Report 20736085 (Version 2)
Quarter: 2022Q2

REPORT INFORMATION
  Report Type: Spontaneous
  Country: FR (occurrence: FR)
  Receive Date: 20220421
  Receipt Date: 20220506
  Transmission Date: 20220721
  Serious: Yes (Death, Hospitalization)
  Sender: FDA-Public Use
  Company Number: FR-UCBSA-2022021956

PATIENT
  Sex: Female

DRUGS (5)
  1. VIMPAT [Suspect]
     Active Substance: LACOSAMIDE
     Indication: Product used for unknown indication
     Dosage: 10 MILLIGRAM PER MILLILITRE, 300 MG
     Route: 042
     Dates: start: 20220318
  2. RIVOTRIL [Concomitant]
     Active Substance: CLONAZEPAM
     Indication: Product used for unknown indication
     Dosage: 1 MILLIGRAM, AS NEEDED (PRN)
     Route: 042
     Dates: start: 20220318, end: 20220318
  3. SOLU-MEDROL [Concomitant]
     Active Substance: METHYLPREDNISOLONE SODIUM SUCCINATE
     Indication: Product used for unknown indication
     Dosage: 40 MILLIGRAM, ONCE DAILY (QD)
     Dates: start: 20220318, end: 20220318
  4. EUPANTOL [Concomitant]
     Active Substance: PANTOPRAZOLE SODIUM
     Indication: Product used for unknown indication
     Dosage: 20 MILLIGRAM, ONCE DAILY (QD)
     Dates: start: 20220318, end: 20220318
  5. PERFALGAN [Concomitant]
     Active Substance: ACETAMINOPHEN
     Indication: Product used for unknown indication
     Dosage: 1 GRAM, AS NEEDED (PRN)
     Route: 042
     Dates: start: 20220318, end: 20220318

REACTIONS (2)
  - Death [Fatal]
  - Hospitalisation [Unknown]
